FAERS Safety Report 15408934 (Version 2)
Quarter: 2018Q3

REPORT INFORMATION
  Report Type: Spontaneous
  Country: RU (occurrence: RU)
  Receive Date: 20180920
  Receipt Date: 20180921
  Transmission Date: 20181010
  Serious: Yes (Other)
  Sender: FDA-Public Use
  Company Number: RU-BAYER-2018-168100

PATIENT
  Age: 61 Year
  Sex: Male

DRUGS (1)
  1. STIVARGA [Suspect]
     Active Substance: REGORAFENIB
     Indication: COLORECTAL CANCER METASTATIC

REACTIONS (14)
  - Adverse drug reaction [None]
  - Unevaluable event [None]
  - Tumour compression [None]
  - Metastases to lung [None]
  - Abdominal neoplasm [None]
  - Drug ineffective [None]
  - Colon cancer [None]
  - Pain [None]
  - Discomfort [None]
  - Colorectal cancer metastatic [None]
  - Metastases to peritoneum [None]
  - Subileus [None]
  - Metastases to liver [None]
  - General physical health deterioration [None]
